FAERS Safety Report 6542770-2 (Version None)
Quarter: 2010Q1

REPORT INFORMATION
  Report Type: 
  Country: None (occurrence: None)
  Receive Date: 20100114
  Receipt Date: 20091229
  Transmission Date: 20100710
  Serious: Yes (Other)
  Sender: FDA-Public Use
  Company Number: JPI-P-009459

PATIENT
  Age: 41 Year
  Sex: Female

DRUGS (4)
  1. XYREM [Suspect]
     Indication: INSOMNIA
     Dosage: (2.25 TO 4.5 GM TWICE NIGHTLY),ORAL ; 9 GM (4.5 GM,2 IN 1 D),ORAL ; 4.5 GM (4.5 GM,1 IN 1 D),ORAL
     Route: 048
     Dates: start: 20091101, end: 20090101
  2. XYREM [Suspect]
     Indication: INSOMNIA
     Dosage: (2.25 TO 4.5 GM TWICE NIGHTLY),ORAL ; 9 GM (4.5 GM,2 IN 1 D),ORAL ; 4.5 GM (4.5 GM,1 IN 1 D),ORAL
     Route: 048
     Dates: start: 20090101, end: 20091223
  3. XYREM [Suspect]
     Indication: INSOMNIA
     Dosage: (2.25 TO 4.5 GM TWICE NIGHTLY),ORAL ; 9 GM (4.5 GM,2 IN 1 D),ORAL ; 4.5 GM (4.5 GM,1 IN 1 D),ORAL
     Route: 048
     Dates: start: 20091224, end: 20091224
  4. METHADONE [Suspect]
     Indication: DRUG USE FOR UNKNOWN INDICATION
     Dosage: (30 MG)

REACTIONS (6)
  - ANORECTAL DISCOMFORT [None]
  - FAECAL INCONTINENCE [None]
  - PHANTOM PAIN [None]
  - PULSE ABSENT [None]
  - SLEEP TALKING [None]
  - SOMNOLENCE [None]
